FAERS Safety Report 17138200 (Version 1)
Quarter: 2019Q4

REPORT INFORMATION
  Report Type: Spontaneous
  Country: SE (occurrence: SE)
  Receive Date: 20191211
  Receipt Date: 20191211
  Transmission Date: 20200122
  Serious: Yes (Hospitalization)
  Sender: FDA-Public Use
  Company Number: SE-TEVA-2019-SE-1149021

PATIENT
  Sex: Female

DRUGS (3)
  1. STESOLID [Suspect]
     Active Substance: DIAZEPAM
     Dosage: ^3 STESOLID^, ^FROM 8 P.M., DURING THE EVENING^
     Route: 048
     Dates: start: 20180102
  2. LERGIGAN [PROMETHAZINE HYDROCHLORIDE] [Suspect]
     Active Substance: PROMETHAZINE HYDROCHLORIDE
     Dosage: ^5 CLAY GIG^, ^FROM 8 P.M., DURING THE EVENING^
     Route: 048
     Dates: start: 20180102
  3. PRAVIDEL (BROMOCRIPTINE MESYLATE) [Suspect]
     Active Substance: BROMOCRIPTINE MESYLATE
     Dosage: ^4 PRAVIDEL^, ^FROM 8 P.M., DURING THE EVENING^
     Route: 048
     Dates: start: 20180102

REACTIONS (2)
  - Intentional overdose [Unknown]
  - Intentional self-injury [Unknown]

NARRATIVE: CASE EVENT DATE: 20180102
